FAERS Safety Report 18851715 (Version 1)
Quarter: 2021Q1

REPORT INFORMATION
  Report Type: Spontaneous
  Country: US (occurrence: US)
  Receive Date: 20210205
  Receipt Date: 20210205
  Transmission Date: 20210420
  Serious: Yes (Other)
  Sender: FDA-Public Use
  Company Number: None

PATIENT
  Age: 97 Year
  Sex: Male
  Weight: 75.8 kg

DRUGS (1)
  1. BAMLANIVIMAB. [Suspect]
     Active Substance: BAMLANIVIMAB
     Indication: COVID-19 PNEUMONIA
     Dates: start: 20210204, end: 20210204

REACTIONS (6)
  - Pupillary light reflex tests abnormal [None]
  - Dyspnoea [None]
  - Tonic clonic movements [None]
  - Unresponsive to stimuli [None]
  - Decorticate posture [None]
  - Cerebral ischaemia [None]

NARRATIVE: CASE EVENT DATE: 20210204
